FAERS Safety Report 15449639 (Version 1)
Quarter: 2018Q4

REPORT INFORMATION
  Report Type: Report from Study
  Country: US (occurrence: US)
  Receive Date: 20181001
  Receipt Date: 20181001
  Transmission Date: 20190204
  Serious: Yes (Other)
  Sender: FDA-Public Use
  Company Number: US-ROCHE-2191228

PATIENT
  Sex: Female
  Weight: 52.21 kg

DRUGS (3)
  1. AMANTADINE. [Concomitant]
     Active Substance: AMANTADINE HYDROCHLORIDE
     Dosage: ONGOING UNKNOWN
     Route: 065
  2. OCREVUS [Suspect]
     Active Substance: OCRELIZUMAB
     Indication: MULTIPLE SCLEROSIS
     Route: 065
     Dates: start: 201611
  3. AMPYRA [Concomitant]
     Active Substance: DALFAMPRIDINE
     Dosage: ONGOING UNKNOWN
     Route: 065

REACTIONS (1)
  - Urinary tract infection [Recovered/Resolved]
